FAERS Safety Report 16966014 (Version 1)
Quarter: 2019Q4

REPORT INFORMATION
  Report Type: Spontaneous
  Country: US (occurrence: US)
  Receive Date: 20191028
  Receipt Date: 20191028
  Transmission Date: 20200122
  Serious: No
  Sender: FDA-Public Use
  Company Number: US-PFIZER INC-2019461321

PATIENT
  Age: 54 Year
  Sex: Female

DRUGS (2)
  1. SILDENAFIL CITRATE. [Suspect]
     Active Substance: SILDENAFIL CITRATE
     Dosage: 20 MG, 3X/DAY
     Dates: start: 20191007
  2. SILDENAFIL CITRATE. [Suspect]
     Active Substance: SILDENAFIL CITRATE
     Indication: RAYNAUD^S PHENOMENON
     Dosage: 60 MG, 3X/DAY

REACTIONS (4)
  - Prescribed overdose [Unknown]
  - Product use in unapproved indication [Unknown]
  - Off label use [Unknown]
  - Arthralgia [Unknown]

NARRATIVE: CASE EVENT DATE: 2019
